FAERS Safety Report 11313533 (Version 2)
Quarter: 2015Q4

REPORT INFORMATION
  Report Type: Spontaneous
  Country: FR (occurrence: FR)
  Receive Date: 20150727
  Receipt Date: 20151019
  Transmission Date: 20160304
  Serious: Yes (Life-Threatening, Hospitalization)
  Sender: FDA-Public Use
  Company Number: FR-PFIZER INC-2015244269

PATIENT
  Age: 21 Year
  Sex: Female
  Weight: 58 kg

DRUGS (7)
  1. RELPAX [Suspect]
     Active Substance: ELETRIPTAN HYDROBROMIDE
     Dosage: 40 MG, UNK
     Route: 048
     Dates: start: 20150519
  2. DOLIPRANE [Suspect]
     Active Substance: ACETAMINOPHEN
     Dosage: 8 G, SINGLE
     Route: 048
     Dates: start: 20150519, end: 20150519
  3. LAROXYL [Suspect]
     Active Substance: AMITRIPTYLINE
     Dosage: 40 MG/ML 8 GTT, SINGLE
     Route: 048
     Dates: start: 20150519, end: 20150519
  4. THYROZOL [Suspect]
     Active Substance: METHIMAZOLE
     Dosage: 5 MG, UNK
     Route: 048
     Dates: start: 20150519
  5. PROPRANOLOL [Concomitant]
     Active Substance: PROPRANOLOL\PROPRANOLOL HYDROCHLORIDE
     Dosage: 40 MG, UNK
  6. OLANZAPINE. [Concomitant]
     Active Substance: OLANZAPINE
     Dosage: UNK
  7. LORAZEPAM. [Concomitant]
     Active Substance: LORAZEPAM
     Dosage: 1 MG, UNK

REACTIONS (5)
  - Toxicity to various agents [Recovered/Resolved]
  - Tachycardia [Recovered/Resolved]
  - Analgesic drug level increased [Recovered/Resolved]
  - Hypertension [Recovered/Resolved]
  - Coma [Recovered/Resolved]

NARRATIVE: CASE EVENT DATE: 20150519
